FAERS Safety Report 5724902-9 (Version None)
Quarter: 2008Q2

REPORT INFORMATION
  Report Type: 
  Country: None (occurrence: None)
  Receive Date: 20080501
  Receipt Date: 20080422
  Transmission Date: 20081010
  Serious: Yes (Other)
  Sender: FDA-Public Use
  Company Number: JP-AVENTIS-200811342JP

PATIENT
  Age: 68 Year
  Sex: Female
  Weight: 38.9 kg

DRUGS (7)
  1. LANTUS [Suspect]
     Indication: DIABETES MELLITUS
     Dosage: DOSE: 8 UNITS/DAY
     Route: 058
     Dates: start: 20071025, end: 20080416
  2. OPTICLIK (INSULIN INJECTION PEN) [Suspect]
     Indication: DIABETES MELLITUS
  3. NOVORAPID [Concomitant]
     Dosage: DOSE: 16 UNITS/DAY
     Dates: start: 20071025
  4. BASEN [Concomitant]
     Dates: start: 20071128, end: 20080408
  5. MEVALOTIN [Concomitant]
     Dates: start: 20080117, end: 20080408
  6. BUP-4 [Concomitant]
     Dates: start: 20080206, end: 20080331
  7. BLADDERON [Concomitant]
     Dates: start: 20080206, end: 20080331

REACTIONS (5)
  - ALANINE AMINOTRANSFERASE INCREASED [None]
  - ASPARTATE AMINOTRANSFERASE INCREASED [None]
  - BLOOD LACTATE DEHYDROGENASE INCREASED [None]
  - GAMMA-GLUTAMYLTRANSFERASE INCREASED [None]
  - HEPATIC FUNCTION ABNORMAL [None]
